FAERS Safety Report 12106005 (Version 1)
Quarter: 2016Q1

REPORT INFORMATION
  Report Type: Spontaneous
  Country: FR (occurrence: FR)
  Receive Date: 20160223
  Receipt Date: 20160223
  Transmission Date: 20160526
  Serious: Yes (Other)
  Sender: FDA-Public Use
  Company Number: FR-PFIZER INC-2016101861

PATIENT
  Age: 19 Year
  Sex: Female

DRUGS (5)
  1. CYCLOPHOSPHAMIDE. [Suspect]
     Active Substance: CYCLOPHOSPHAMIDE
     Indication: OSTEOSARCOMA
     Dosage: UNK
     Dates: start: 198412, end: 198602
  2. METHOTREXATE SODIUM. [Suspect]
     Active Substance: METHOTREXATE SODIUM
     Indication: OSTEOSARCOMA
     Dosage: UNK
     Dates: start: 198412, end: 198602
  3. ACTINOMYCIN D [Suspect]
     Active Substance: DACTINOMYCIN
     Indication: OSTEOSARCOMA
     Dosage: UNK
     Dates: start: 198412, end: 198602
  4. BLEOMYCIN [Suspect]
     Active Substance: BLEOMYCIN SULFATE
     Indication: OSTEOSARCOMA
     Dosage: UNK
     Dates: start: 198412, end: 198602
  5. ADRIAMYCIN [Suspect]
     Active Substance: DOXORUBICIN HYDROCHLORIDE
     Indication: OSTEOSARCOMA
     Dosage: UNK
     Dates: start: 198412, end: 198602

REACTIONS (1)
  - Acute myelomonocytic leukaemia [Recovered/Resolved]
